FAERS Safety Report 24927869 (Version 1)
Quarter: 2025Q1

REPORT INFORMATION
  Report Type: Spontaneous
  Country: US (occurrence: US)
  Receive Date: 20250205
  Receipt Date: 20250205
  Transmission Date: 20250408
  Serious: No
  Sender: ALEXION PHARMACEUTICALS
  Company Number: US-AstraZeneca-CH-00796449A

PATIENT

DRUGS (2)
  1. WAINUA [Suspect]
     Active Substance: EPLONTERSEN
     Indication: Hereditary ATTR amyloid cardiomyopathy
     Dosage: 45 MILLIGRAM, Q4W
  2. WAINUA [Suspect]
     Active Substance: EPLONTERSEN
     Indication: Polyneuropathy

REACTIONS (2)
  - Disease progression [Unknown]
  - Pain in extremity [Recovered/Resolved]
